FAERS Safety Report 7654955-2 (Version None)
Quarter: 2011Q3

REPORT INFORMATION
  Report Type: 
  Country: None (occurrence: None)
  Receive Date: 20110728
  Receipt Date: 20110712
  Transmission Date: 20111222
  Serious: Yes (Death, Hospitalization, Other)
  Sender: FDA-Public Use
  Company Number: 2011MA008720

PATIENT
  Age: 20 Year
  Sex: Female

DRUGS (3)
  1. VINORELBINE [Suspect]
     Indication: B PRECURSOR TYPE ACUTE LEUKAEMIA
     Dosage: 20 MG/M**2; 1X
  2. TOPOTECAN [Suspect]
     Indication: B PRECURSOR TYPE ACUTE LEUKAEMIA
     Dosage: 1.5 MG
  3. CISPLATIN [Suspect]
     Indication: B PRECURSOR TYPE ACUTE LEUKAEMIA
     Dosage: 30 MG/M**2; 1X

REACTIONS (14)
  - COMA SCALE ABNORMAL [None]
  - WHITE BLOOD CELL COUNT DECREASED [None]
  - BLOOD ALBUMIN DECREASED [None]
  - HYPERAMMONAEMIA [None]
  - CSF GLUCOSE INCREASED [None]
  - GAMMA-GLUTAMYLTRANSFERASE INCREASED [None]
  - DISORIENTATION [None]
  - CONVULSION [None]
  - RESPIRATORY ALKALOSIS [None]
  - NEUTROPENIA [None]
  - COGNITIVE DISORDER [None]
  - ASPARTATE AMINOTRANSFERASE INCREASED [None]
  - SOMNOLENCE [None]
  - ALANINE AMINOTRANSFERASE INCREASED [None]
